FAERS Safety Report 10331186 (Version 2)
Quarter: 2014Q3

REPORT INFORMATION
  Report Type: Spontaneous
  Country: IN (occurrence: IN)
  Receive Date: 20140722
  Receipt Date: 20140722
  Transmission Date: 20150326
  Serious: Yes (Other)
  Sender: FDA-Public Use
  Company Number: IN-BEH-2014043857

PATIENT
  Age: 32 Year
  Sex: Female

DRUGS (1)
  1. RH (D) IMMUNOPROPHYLAXIS [Suspect]
     Active Substance: HUMAN RHO(D) IMMUNE GLOBULIN
     Indication: PROPHYLAXIS AGAINST RH ISOIMMUNISATION

REACTIONS (2)
  - Rhesus antibodies positive [Unknown]
  - Alloimmunisation [Unknown]
